FAERS Safety Report 6193336-8 (Version None)
Quarter: 2009Q2

REPORT INFORMATION
  Report Type: 
  Country: None (occurrence: None)
  Receive Date: 20090514
  Receipt Date: 20090501
  Transmission Date: 20091009
  Serious: No
  Sender: FDA-Public Use
  Company Number: 2009S1007640

PATIENT
  Age: 68 Year
  Sex: Female
  Weight: 65.7716 kg

DRUGS (11)
  1. ALPRAZOLAM [Suspect]
     Indication: ANXIETY
     Dosage: 2.5 MG; TWICE A DAY; ORAL, 0.5 MG; AT BEDTIME; ORAL
     Route: 048
     Dates: start: 20081201, end: 20090413
  2. ALPRAZOLAM [Suspect]
     Indication: DEPRESSION
     Dosage: 2.5 MG; TWICE A DAY; ORAL, 0.5 MG; AT BEDTIME; ORAL
     Route: 048
     Dates: start: 20081201, end: 20090413
  3. ALPRAZOLAM [Suspect]
     Indication: ANXIETY
     Dosage: 2.5 MG; TWICE A DAY; ORAL, 0.5 MG; AT BEDTIME; ORAL
     Route: 048
     Dates: start: 20090414
  4. ALPRAZOLAM [Suspect]
     Indication: DEPRESSION
     Dosage: 2.5 MG; TWICE A DAY; ORAL, 0.5 MG; AT BEDTIME; ORAL
     Route: 048
     Dates: start: 20090414
  5. ALPRAZOLAM [Suspect]
     Indication: ANXIETY
     Dosage: 2.5 MG; TWICE A DAY; ORAL, 0.5 MG; AT BEDTIME; ORAL
     Route: 048
     Dates: start: 20090414
  6. ALPRAZOLAM [Suspect]
     Indication: DEPRESSION
     Dosage: 2.5 MG; TWICE A DAY; ORAL, 0.5 MG; AT BEDTIME; ORAL
     Route: 048
     Dates: start: 20090414
  7. ESCITALOPRAM OXALATE [Suspect]
     Indication: DEPRESSION
     Dosage: AT BEDTIME; ORAL
     Route: 048
     Dates: start: 20081201, end: 20090414
  8. LIPITOR [Concomitant]
  9. BENICAR [Concomitant]
  10. EVISTA [Concomitant]
  11. SYNTHROID [Concomitant]

REACTIONS (4)
  - CHEST PAIN [None]
  - CHILLS [None]
  - HEADACHE [None]
  - WEIGHT DECREASED [None]
